FAERS Safety Report 9267550 (Version 2)
Quarter: 2013Q3

REPORT INFORMATION
  Report Type: Spontaneous
  Country: FR (occurrence: FR)
  Receive Date: 20130502
  Receipt Date: 20130924
  Transmission Date: 20140515
  Serious: Yes (Hospitalization)
  Sender: FDA-Public Use
  Company Number: FR-GLAXOSMITHKLINE-B0887099A

PATIENT
  Age: 46 Year
  Sex: Female

DRUGS (9)
  1. LAMICTAL [Suspect]
     Indication: BIPOLAR I DISORDER
     Dosage: 100MG TWICE PER DAY
     Route: 048
     Dates: start: 20120613, end: 20120803
  2. DEPAKOTE [Suspect]
     Indication: BIPOLAR I DISORDER
     Dosage: 1G SINGLE DOSE
     Route: 048
     Dates: start: 20120804, end: 20120804
  3. DIFFU K [Concomitant]
     Route: 065
  4. CRESTOR [Concomitant]
     Route: 065
  5. ZOMIG [Concomitant]
     Route: 065
  6. TOCO [Concomitant]
     Route: 065
  7. RIVOTRIL [Concomitant]
     Route: 065
  8. VICTAN [Concomitant]
     Route: 065
  9. TERALITHE [Concomitant]
     Route: 065

REACTIONS (11)
  - Rash generalised [Recovered/Resolved]
  - Pyrexia [Recovered/Resolved]
  - Pruritus [Recovered/Resolved]
  - Malaise [Unknown]
  - Fall [Unknown]
  - Haematoma [Unknown]
  - Skin exfoliation [Unknown]
  - Leukocytosis [Unknown]
  - Neutrophilia [Unknown]
  - Microcytosis [Unknown]
  - Gamma-glutamyltransferase increased [Unknown]
